FAERS Safety Report 23388124 (Version 4)
Quarter: 2024Q1

REPORT INFORMATION
  Report Type: Spontaneous
  Country: US (occurrence: US)
  Receive Date: 20240110
  Receipt Date: 20240205
  Transmission Date: 20240410
  Serious: No
  Sender: FDA-Public Use
  Company Number: US-JNJFOC-20240115292

PATIENT
  Age: 69 Year
  Sex: Female

DRUGS (2)
  1. SPRAVATO [Suspect]
     Active Substance: ESKETAMINE
     Indication: Major depression
     Dates: start: 202309
  2. SPRAVATO [Suspect]
     Active Substance: ESKETAMINE
     Indication: Bipolar disorder
     Dates: start: 202310, end: 202401

REACTIONS (9)
  - Drug ineffective [Unknown]
  - Sedation [Unknown]
  - Blood pressure increased [Recovered/Resolved]
  - Fatigue [Unknown]
  - Feeling abnormal [Unknown]
  - Depressed mood [Unknown]
  - Depression [Unknown]
  - Device defective [Unknown]
  - Incorrect dose administered by device [Unknown]
